FAERS Safety Report 23105469 (Version 2)
Quarter: 2023Q4

REPORT INFORMATION
  Report Type: Spontaneous
  Country: ES (occurrence: None)
  Receive Date: 20231025
  Receipt Date: 20231110
  Transmission Date: 20240109
  Serious: Yes (Other)
  Sender: FDA-Public Use
  Company Number: 2023A220205

PATIENT
  Age: 73 Year
  Sex: Male

DRUGS (8)
  1. QUETIAPINE [Suspect]
     Active Substance: QUETIAPINE
     Indication: Depression
     Dosage: UNK
     Route: 048
  2. QUETIAPINE [Suspect]
     Active Substance: QUETIAPINE
     Indication: Depression
     Dosage: DECREASED DOSE
     Route: 048
  3. DIAZEPAM [Suspect]
     Active Substance: DIAZEPAM
     Indication: Depression
     Dosage: UNK
  4. DIAZEPAM [Suspect]
     Active Substance: DIAZEPAM
     Indication: Depression
     Dosage: REDUCED DOSE
  5. OLANZAPINE [Suspect]
     Active Substance: OLANZAPINE
     Indication: Depression
     Dosage: UNK
  6. OLANZAPINE [Suspect]
     Active Substance: OLANZAPINE
     Indication: Depression
     Dosage: REDUCED DOSE
  7. DULOXETINE [Suspect]
     Active Substance: DULOXETINE
     Indication: Personality disorder
     Dosage: 60 MG 2CP/DAY
  8. DULOXETINE [Suspect]
     Active Substance: DULOXETINE
     Indication: Personality disorder
     Dosage: 60 MG

REACTIONS (4)
  - Memory impairment [Unknown]
  - Depressed mood [Unknown]
  - Hallucination, visual [Unknown]
  - Intentional product misuse [Unknown]
